FAERS Safety Report 10186290 (Version 2)
Quarter: 2014Q3

REPORT INFORMATION
  Report Type: Report from Study
  Country: US (occurrence: US)
  Receive Date: 20140521
  Receipt Date: 20140801
  Transmission Date: 20150326
  Serious: Yes (Hospitalization)
  Sender: FDA-Public Use
  Company Number: PHEH2014US010126

PATIENT
  Age: 19 Year
  Sex: Male
  Weight: 106 kg

DRUGS (5)
  1. CELEXA [Concomitant]
     Active Substance: CITALOPRAM HYDROBROMIDE
     Indication: DEPRESSION
     Dosage: 40 MG, UNK
     Route: 048
     Dates: start: 20140327, end: 20140509
  2. CLOZARIL [Suspect]
     Active Substance: CLOZAPINE
     Indication: MAJOR DEPRESSION
     Dosage: 350 MG, DAILY
     Route: 048
     Dates: start: 20140109, end: 20140322
  3. METFORMIN [Concomitant]
     Active Substance: METFORMIN HYDROCHLORIDE
     Indication: METABOLIC SYNDROME
     Dosage: 1000 MG, UNK
     Route: 048
     Dates: start: 20140314
  4. NEUROVIT [Concomitant]
     Indication: ANXIETY
     Dosage: 2700 MG, UNK
     Route: 048
     Dates: start: 20131226, end: 20140414
  5. VYVANSE [Concomitant]
     Active Substance: LISDEXAMFETAMINE DIMESYLATE
     Indication: DISTURBANCE IN ATTENTION
     Dosage: 40 MG, UNK
     Route: 048
     Dates: start: 20140227, end: 20140510

REACTIONS (5)
  - Weight increased [Unknown]
  - Psychotic disorder [Unknown]
  - Neutrophil count increased [Unknown]
  - Lipids increased [Unknown]
  - White blood cell count increased [Recovered/Resolved]

NARRATIVE: CASE EVENT DATE: 20140325
